FAERS Safety Report 12012317 (Version 1)
Quarter: 2016Q1

REPORT INFORMATION
  Report Type: Spontaneous
  Country: FR (occurrence: FR)
  Receive Date: 20160205
  Receipt Date: 20160205
  Transmission Date: 20160526
  Serious: Yes (Hospitalization)
  Sender: FDA-Public Use
  Company Number: FR-009507513-1602FRA002689

PATIENT
  Sex: Female

DRUGS (6)
  1. ETOPOSIDE. [Suspect]
     Active Substance: ETOPOSIDE
     Dosage: 192 MG, QD
     Route: 042
     Dates: start: 20160113, end: 20160114
  2. PLITICAN [Suspect]
     Active Substance: ALIZAPRIDE HYDROCHLORIDE
     Dosage: 5 MG, QD
     Route: 042
     Dates: start: 20160115, end: 20160116
  3. VINCRISTINE SULFATE. [Suspect]
     Active Substance: VINCRISTINE SULFATE
     Dosage: 2 MG, SINGLE DOSE
     Route: 042
     Dates: start: 20160113, end: 20160113
  4. IFOSFAMIDE. [Suspect]
     Active Substance: IFOSFAMIDE
     Dosage: 4800 MG
     Route: 042
     Dates: start: 20160113, end: 20160115
  5. ADRIBLASTINE [Suspect]
     Active Substance: DOXORUBICIN
     Dosage: 32 MG, QD
     Route: 042
     Dates: start: 20160113, end: 20160115
  6. EMEND [Suspect]
     Active Substance: APREPITANT
     Dosage: 80 MG, QD
     Route: 048
     Dates: start: 20160115, end: 20160116

REACTIONS (3)
  - Hyperreflexia [Recovered/Resolved]
  - Cerebellar syndrome [Recovered/Resolved]
  - Diplopia [Recovered/Resolved]
